FAERS Safety Report 18059290 (Version 1)
Quarter: 2020Q3

REPORT INFORMATION
  Report Type: Spontaneous
  Country: US (occurrence: US)
  Receive Date: 20200722
  Receipt Date: 20200722
  Transmission Date: 20201103
  Serious: Yes (Hospitalization)
  Sender: FDA-Public Use
  Company Number: None

PATIENT
  Age: 59 Year
  Sex: Female

DRUGS (4)
  1. AMIODARONE [Concomitant]
     Active Substance: AMIODARONE
  2. OPSUMIT [Suspect]
     Active Substance: MACITENTAN
     Indication: PULMONARY ARTERIAL HYPERTENSION
     Route: 048
     Dates: start: 202006
  3. HYDROXYCHLOROQUINE [Concomitant]
     Active Substance: HYDROXYCHLOROQUINE
  4. MIDODRINE [Concomitant]
     Active Substance: MIDODRINE

REACTIONS (5)
  - Acute kidney injury [None]
  - Blood loss anaemia [None]
  - Hyperkalaemia [None]
  - Hyponatraemia [None]
  - Respiratory failure [None]

NARRATIVE: CASE EVENT DATE: 20200628
